FAERS Safety Report 8605727-3 (Version None)
Quarter: 2012Q3

REPORT INFORMATION
  Report Type: 
  Country: None (occurrence: None)
  Receive Date: 20120820
  Receipt Date: 20120806
  Transmission Date: 20120928
  Serious: Yes (Hospitalization)
  Sender: FDA-Public Use
  Company Number: US-MYLANLABS-2012S1016186

PATIENT
  Age: 27 Year
  Sex: Male

DRUGS (5)
  1. OLANZAPINE [Suspect]
     Route: 065
  2. VALPROATE SODIUM [Suspect]
     Route: 065
  3. BENZTROPINE MESYLATE [Suspect]
     Route: 065
  4. ARIPIPRAZOLE [Suspect]
     Route: 065
  5. BUPROPION HCL [Concomitant]
     Route: 065

REACTIONS (3)
  - COLITIS ISCHAEMIC [None]
  - TREMOR [None]
  - EXCESSIVE EYE BLINKING [None]
